FAERS Safety Report 4511750-0 (Version None)
Quarter: 2004Q4

REPORT INFORMATION
  Report Type: 
  Country: None (occurrence: None)
  Receive Date: 20041123
  Receipt Date: 20041123
  Transmission Date: 20050328
  Serious: Yes (Other)
  Sender: FDA-Public Use
  Company Number: None

PATIENT
  Age: 81 Year
  Sex: Male
  Weight: 56.2 kg

DRUGS (15)
  1. TERAZOSIN HCL [Suspect]
  2. ALBUTEROL SULFATE AND IPRATROPIUM BROMIDE [Concomitant]
  3. OMEPRAZOLE [Concomitant]
  4. LISINOPRIL [Concomitant]
  5. CARVEDILOL [Concomitant]
  6. METOCLOPRAMIDE HCL [Concomitant]
  7. URSODIOL [Concomitant]
  8. LANOXIN [Concomitant]
  9. ASPIRIN [Concomitant]
  10. NUTRITION SUPL RESOURCE/VAN LIQUID [Concomitant]
  11. NITROGLYCERIN [Concomitant]
  12. LORATADINE [Concomitant]
  13. GLYBURIDE [Concomitant]
  14. HYDROCODONE 5/ACETAMINOPHEN [Concomitant]
  15. LANCET, TECHLITE [Concomitant]

REACTIONS (1)
  - DIZZINESS [None]
